FAERS Safety Report 26206910 (Version 1)
Quarter: 2025Q4

REPORT INFORMATION
  Report Type: Report from Study
  Country: EU (occurrence: EU)
  Receive Date: 20251229
  Receipt Date: 20251229
  Transmission Date: 20260119
  Serious: Yes (Other)
  Sender: LEO PHARM
  Company Number: EU-LEO Pharma-383563

PATIENT
  Age: 53 Year
  Sex: Male

DRUGS (2)
  1. ADBRY [Suspect]
     Active Substance: TRALOKINUMAB-LDRM
     Indication: Dermatitis atopic
     Dosage: WEEK 0 LOADING DOSE
     Route: 058
     Dates: start: 20250912, end: 20250912
  2. ADBRY [Suspect]
     Active Substance: TRALOKINUMAB-LDRM
     Indication: Dermatitis atopic
     Dosage: .300 MG, EVERY 2 WEEKS
     Route: 058
     Dates: start: 2025

REACTIONS (3)
  - Ulcerative keratitis [Recovered/Resolved]
  - Eye irritation [Unknown]
  - Dry eye [Recovered/Resolved]

NARRATIVE: CASE EVENT DATE: 20251001
